FAERS Safety Report 13554892 (Version 1)
Quarter: 2017Q2

REPORT INFORMATION
  Report Type: Spontaneous
  Country: US (occurrence: US)
  Receive Date: 20170516
  Receipt Date: 20170516
  Transmission Date: 20170830
  Serious: Yes (Hospitalization)
  Sender: FDA-Public Use
  Company Number: None

PATIENT
  Age: 51 Year
  Sex: Male
  Weight: 101.2 kg

DRUGS (1)
  1. AZATHIOPRINE. [Suspect]
     Active Substance: AZATHIOPRINE
     Indication: SARCOIDOSIS
     Route: 048
     Dates: start: 20160422, end: 20160502

REACTIONS (3)
  - Influenza like illness [None]
  - Pyrexia [None]
  - Tachycardia [None]

NARRATIVE: CASE EVENT DATE: 20160430
